FAERS Safety Report 8815941 (Version 2)
Quarter: 2015Q3

REPORT INFORMATION
  Report Type: Report from Study
  Country: US (occurrence: US)
  Receive Date: 20120928
  Receipt Date: 20150731
  Transmission Date: 20151125
  Serious: Yes (Death)
  Sender: FDA-Public Use
  Company Number: US-ROCHE-1129685

PATIENT
  Age: 77 Year
  Sex: Female

DRUGS (44)
  1. PACLITAXEL. [Concomitant]
     Active Substance: PACLITAXEL
     Route: 042
  2. HYDROCHLOROTHIAZIDE. [Concomitant]
     Active Substance: HYDROCHLOROTHIAZIDE
     Route: 048
  3. KYTRIL [Concomitant]
     Active Substance: GRANISETRON HYDROCHLORIDE
     Route: 042
  4. HERCEPTIN [Suspect]
     Active Substance: TRASTUZUMAB
     Indication: BLADDER CANCER
     Route: 042
  5. OXYCONTIN [Concomitant]
     Active Substance: OXYCODONE HYDROCHLORIDE
     Dosage: 2 Q2-12 HR
     Route: 065
  6. LEVOXYL [Concomitant]
     Active Substance: LEVOTHYROXINE SODIUM
     Route: 048
  7. DILAUDID [Concomitant]
     Active Substance: HYDROMORPHONE HYDROCHLORIDE
     Route: 065
  8. DECADRON [Concomitant]
     Active Substance: DEXAMETHASONE
     Route: 042
  9. DESIPRAMINE [Concomitant]
     Active Substance: DESIPRAMINE
     Dosage: QHS
     Route: 048
  10. NITROFURANTOIN. [Concomitant]
     Active Substance: NITROFURANTOIN
  11. OXYCONTIN [Concomitant]
     Active Substance: OXYCODONE HYDROCHLORIDE
     Route: 048
  12. LISINOPRIL. [Concomitant]
     Active Substance: LISINOPRIL
     Route: 048
  13. TOPAMAX [Concomitant]
     Active Substance: TOPIRAMATE
     Route: 048
  14. MACROBID (UNITED STATES) [Concomitant]
     Route: 048
  15. VESICARE [Concomitant]
     Active Substance: SOLIFENACIN SUCCINATE
     Route: 065
  16. DILAUDID [Concomitant]
     Active Substance: HYDROMORPHONE HYDROCHLORIDE
     Route: 048
  17. BENADRYL [Concomitant]
     Active Substance: DIPHENHYDRAMINE HYDROCHLORIDE
     Route: 042
  18. DECADRON [Concomitant]
     Active Substance: DEXAMETHASONE
     Route: 042
  19. HERCEPTIN [Suspect]
     Active Substance: TRASTUZUMAB
     Route: 042
  20. TOPAMAX [Concomitant]
     Active Substance: TOPIRAMATE
     Route: 048
  21. TOPAMAX [Concomitant]
     Active Substance: TOPIRAMATE
     Dosage: EVERY MORNING
     Route: 065
  22. OXYBUTYNIN [Concomitant]
     Active Substance: OXYBUTYNIN
     Route: 048
  23. LEXAPRO [Concomitant]
     Active Substance: ESCITALOPRAM OXALATE
     Route: 048
  24. ZANTAC [Concomitant]
     Active Substance: RANITIDINE HYDROCHLORIDE
     Route: 042
  25. DESIPRAMINE [Concomitant]
     Active Substance: DESIPRAMINE
     Route: 048
  26. OMNICEF (UNITED STATES) [Concomitant]
     Route: 048
  27. MACRODANTIN [Concomitant]
     Active Substance: NITROFURANTOIN
     Route: 065
  28. VESICARE [Concomitant]
     Active Substance: SOLIFENACIN SUCCINATE
     Indication: BLADDER SPASM
     Dosage: 5 TO 10 MG
     Route: 048
  29. FLU VACCINE [Concomitant]
     Active Substance: INFLUENZA VIRUS VACCINE
     Indication: PNEUMONIA
  30. PROAMATINE [Concomitant]
     Active Substance: MIDODRINE HYDROCHLORIDE
     Dosage: EVERY MORNING
     Route: 065
  31. HERCEPTIN [Suspect]
     Active Substance: TRASTUZUMAB
     Route: 042
  32. HERCEPTIN [Suspect]
     Active Substance: TRASTUZUMAB
     Route: 042
  33. ADVIL [Concomitant]
     Active Substance: IBUPROFEN
     Dosage: AS REQUIRED
     Route: 065
  34. LEVOTHYROXINE. [Concomitant]
     Active Substance: LEVOTHYROXINE
     Route: 065
  35. HERCEPTIN [Suspect]
     Active Substance: TRASTUZUMAB
     Route: 042
  36. LORAZEPAM. [Concomitant]
     Active Substance: LORAZEPAM
     Indication: NAUSEA
     Route: 048
  37. HERCEPTIN [Suspect]
     Active Substance: TRASTUZUMAB
     Route: 042
  38. OXYCONTIN [Concomitant]
     Active Substance: OXYCODONE HYDROCHLORIDE
     Route: 048
  39. MEGACE [Concomitant]
     Active Substance: MEGESTROL ACETATE
     Dosage: 20 CC DAILY
     Route: 065
  40. DECADRON [Concomitant]
     Active Substance: DEXAMETHASONE
     Route: 042
  41. DECADRON [Concomitant]
     Active Substance: DEXAMETHASONE
     Route: 042
  42. DECADRON [Concomitant]
     Active Substance: DEXAMETHASONE
     Route: 042
  43. ATIVAN [Concomitant]
     Active Substance: LORAZEPAM
     Route: 048
  44. PROAMATINE [Concomitant]
     Active Substance: MIDODRINE HYDROCHLORIDE
     Dosage: EVERY NIGHT
     Route: 065

REACTIONS (29)
  - Bone pain [Unknown]
  - Death [Fatal]
  - Disease progression [Unknown]
  - Haemorrhage [Unknown]
  - Bladder spasm [Unknown]
  - Oedema peripheral [Unknown]
  - Fatigue [Unknown]
  - Abdominal pain [Unknown]
  - Constipation [Unknown]
  - Depression [Unknown]
  - Urinary tract infection [Unknown]
  - Off label use [Unknown]
  - Pelvic pain [Unknown]
  - Anxiety [Unknown]
  - Hypertension [Unknown]
  - Pain [Unknown]
  - Asthenia [Unknown]
  - Swelling [Unknown]
  - Pruritus [Unknown]
  - Feeling abnormal [Unknown]
  - Haematuria [Unknown]
  - Dyspnoea [Unknown]
  - Nausea [Unknown]
  - Restlessness [Unknown]
  - Dyspnoea exertional [Unknown]
  - Decreased appetite [Unknown]
  - Hypoaesthesia [Unknown]
  - Dizziness [Unknown]
  - Rash [Unknown]

NARRATIVE: CASE EVENT DATE: 20060808
